FAERS Safety Report 5697725-7 (Version None)
Quarter: 2008Q2

REPORT INFORMATION
  Report Type: 
  Country: None (occurrence: None)
  Receive Date: 20080408
  Receipt Date: 20080401
  Transmission Date: 20081010
  Serious: Yes (Other)
  Sender: FDA-Public Use
  Company Number: B0514546A

PATIENT
  Sex: Female

DRUGS (1)
  1. IMIGRAN [Suspect]
     Indication: MIGRAINE WITHOUT AURA
     Route: 058

REACTIONS (3)
  - CONVULSION [None]
  - DYSPNOEA [None]
  - HEADACHE [None]
